FAERS Safety Report 8485071-8 (Version None)
Quarter: 2012Q2

REPORT INFORMATION
  Report Type: 
  Country: None (occurrence: None)
  Receive Date: 20120625
  Receipt Date: 20120612
  Transmission Date: 20120825
  Serious: Yes (Hospitalization)
  Sender: FDA-Public Use
  Company Number: UTC-018861

PATIENT
  Age: 67 Year
  Sex: Female
  Weight: 52.73 kg

DRUGS (4)
  1. TYVASO [Suspect]
     Indication: PULMONARY HYPERTENSION
     Dosage: 18 TO 54 MCGS (4 IN 1 D), INHALATION
     Route: 055
     Dates: start: 20110107
  2. REVATIO [Concomitant]
  3. TYVASO [Suspect]
  4. COUMADIN [Concomitant]

REACTIONS (1)
  - HEPATITIS [None]
